FAERS Safety Report 24432897 (Version 1)
Quarter: 2024Q4

REPORT INFORMATION
  Report Type: Report from Study
  Country: BY (occurrence: BY)
  Receive Date: 20241014
  Receipt Date: 20241014
  Transmission Date: 20250114
  Serious: Yes (Death, Life-Threatening)
  Sender: MYLAN
  Company Number: BY-MYLANLABS-2024M1092895

PATIENT
  Age: 60 Year
  Sex: Male
  Weight: 55 kg

DRUGS (10)
  1. PRETOMANID [Suspect]
     Active Substance: PRETOMANID
     Indication: Product used for unknown indication
     Dosage: 200 MILLIGRAM, QD (OD)
     Route: 048
     Dates: start: 20240418, end: 20240710
  2. BEDAQUILINE [Suspect]
     Active Substance: BEDAQUILINE
     Indication: Product used for unknown indication
     Dosage: 400 MILLIGRAM, QD (OD, FOR 2 WEEKS)
     Route: 048
     Dates: start: 20240418
  3. BEDAQUILINE [Suspect]
     Active Substance: BEDAQUILINE
     Dosage: 200 MILLIGRAM, 3XW (TIW)
     Route: 048
     Dates: end: 20240710
  4. LINEZOLID [Suspect]
     Active Substance: LINEZOLID
     Indication: Product used for unknown indication
     Dosage: 600 MILLIGRAM, QD (OD)
     Route: 048
     Dates: start: 20240418, end: 20240710
  5. MOXIFLOXACIN [Suspect]
     Active Substance: MOXIFLOXACIN
     Indication: Product used for unknown indication
     Dosage: 400 MILLIGRAM, QD (OD)
     Route: 048
     Dates: start: 20240418, end: 20240710
  6. CLOFAZIMINE [Suspect]
     Active Substance: CLOFAZIMINE
     Indication: Product used for unknown indication
     Dosage: 100 MILLIGRAM, QD (OD)
     Route: 048
     Dates: start: 20240604, end: 20240710
  7. BISOPROLOL [Concomitant]
     Active Substance: BISOPROLOL\BISOPROLOL FUMARATE
     Indication: Hypertension
     Dosage: 2.5 MILLIGRAM (X 1R/JOUR)
     Route: 065
     Dates: start: 20240416, end: 20240710
  8. RAMIPRIL [Concomitant]
     Active Substance: RAMIPRIL
     Indication: Hypertension
     Dosage: 2.5 MILLIGRAM, AM (MORNING)
     Route: 065
  9. TRAMADOL [Concomitant]
     Active Substance: TRAMADOL
     Indication: Analgesic therapy
     Dosage: 100 MILLIGRAM, BID (TWICE DAILY)
     Route: 048
     Dates: start: 20240702, end: 20240710
  10. RINGERS SOLUTION [Concomitant]
     Active Substance: CALCIUM CHLORIDE\POTASSIUM CHLORIDE\SODIUM CHLORIDE
     Indication: Detoxification
     Dosage: 500 MILLILITER (INTRAVENOUS DRIP)
     Route: 042
     Dates: start: 20240624, end: 20240710

REACTIONS (3)
  - Tongue neoplasm malignant stage unspecified [Fatal]
  - Malignant neoplasm progression [Fatal]
  - Acute kidney injury [Not Recovered/Not Resolved]

NARRATIVE: CASE EVENT DATE: 20240426
